FAERS Safety Report 9814320 (Version 13)
Quarter: 2016Q2

REPORT INFORMATION
  Report Type: Report from Study
  Country: CA (occurrence: CA)
  Receive Date: 20140113
  Receipt Date: 20160531
  Transmission Date: 20160815
  Serious: Yes (Hospitalization, Other)
  Sender: FDA-Public Use
  Company Number: PHHY2014CA002825

PATIENT
  Age: 85 Year
  Sex: Female

DRUGS (1)
  1. SANDOSTATIN LAR DEPOT [Suspect]
     Active Substance: OCTREOTIDE ACETATE
     Indication: INSULINOMA
     Dosage: 10 MG, QMO (ONCE MONTH)
     Route: 030
     Dates: start: 20131209

REACTIONS (23)
  - Blood pressure systolic increased [Unknown]
  - Oropharyngeal pain [Unknown]
  - Pharyngeal disorder [Unknown]
  - Flatulence [Unknown]
  - Diarrhoea [Not Recovered/Not Resolved]
  - Decreased appetite [Unknown]
  - Cardiac failure [Not Recovered/Not Resolved]
  - Blood pressure diastolic decreased [Unknown]
  - Blood pressure diastolic increased [Unknown]
  - Pain [Recovering/Resolving]
  - Faeces soft [Not Recovered/Not Resolved]
  - Nausea [Unknown]
  - Cardiac disorder [Not Recovered/Not Resolved]
  - Hip fracture [Unknown]
  - Gastroenteritis [Recovering/Resolving]
  - Vomiting [Recovering/Resolving]
  - Bursitis [Recovering/Resolving]
  - Erythema [Recovering/Resolving]
  - Lymphadenopathy [Unknown]
  - Joint swelling [Recovering/Resolving]
  - Hypoglycaemia [Unknown]
  - Dizziness [Unknown]
  - Fall [Unknown]

NARRATIVE: CASE EVENT DATE: 20140108
